FAERS Safety Report 9314038 (Version 1)
Quarter: 2013Q2

REPORT INFORMATION
  Report Type: Spontaneous
  Country: US (occurrence: None)
  Receive Date: 20130524
  Receipt Date: 20130524
  Transmission Date: 20140414
  Serious: Yes (Hospitalization)
  Sender: FDA-Public Use
  Company Number: None

PATIENT
  Age: 50 Year
  Sex: Male
  Weight: 83.9 kg

DRUGS (2)
  1. GEMFIBROZIL [Suspect]
     Indication: RHABDOMYOLYSIS
     Route: 048
     Dates: start: 20130213, end: 20130313
  2. ROSUVASTATIN [Suspect]
     Route: 048
     Dates: start: 20100824, end: 20130312

REACTIONS (6)
  - Nausea [None]
  - Vomiting [None]
  - Liver function test abnormal [None]
  - Abdominal pain lower [None]
  - Rhabdomyolysis [None]
  - Gastrointestinal disorder [None]
